FAERS Safety Report 8608715-6 (Version None)
Quarter: 2012Q3

REPORT INFORMATION
  Report Type: 
  Country: None (occurrence: None)
  Receive Date: 20120821
  Receipt Date: 20110826
  Transmission Date: 20120928
  Serious: No
  Sender: FDA-Public Use
  Company Number: US-MYLANLABS-2011S1015522

PATIENT
  Age: 71 Year
  Sex: Female

DRUGS (7)
  1. EXFORGE [Concomitant]
     Indication: HYPERTENSION
     Dates: start: 20100101
  2. DIOVAN [Concomitant]
     Indication: HYPERTENSION
  3. DILTIAZEM [Concomitant]
     Indication: HYPERTENSION
  4. INSULIN [Concomitant]
     Indication: DIABETES MELLITUS
  5. VITAMIN TAB [Concomitant]
  6. LISINOPRIL [Suspect]
     Indication: HYPERTENSION
     Route: 048
     Dates: start: 20110517, end: 20110711
  7. JANUMET [Concomitant]
     Indication: DIABETES MELLITUS

REACTIONS (6)
  - INCREASED UPPER AIRWAY SECRETION [None]
  - CHEST PAIN [None]
  - HEADACHE [None]
  - FATIGUE [None]
  - ABDOMINAL PAIN UPPER [None]
  - COUGH [None]
